FAERS Safety Report 15309132 (Version 2)
Quarter: 2018Q4

REPORT INFORMATION
  Report Type: Report from Study
  Country: US (occurrence: US)
  Receive Date: 20180823
  Receipt Date: 20181113
  Transmission Date: 20190204
  Serious: Yes (Other)
  Sender: FDA-Public Use
  Company Number: US-AMGEN-USASL2018114459

PATIENT
  Age: 65 Year
  Sex: Female

DRUGS (8)
  1. BOTOX [Concomitant]
     Active Substance: ONABOTULINUMTOXINA
     Dosage: UNK
  2. FENTANYL. [Concomitant]
     Active Substance: FENTANYL
     Indication: SEIZURE
     Dosage: UNK
     Route: 042
     Dates: start: 20180816
  3. DECADRON [Concomitant]
     Active Substance: DEXAMETHASONE
     Indication: GAIT DISTURBANCE
     Dosage: UNK
  4. AIMOVIG [Suspect]
     Active Substance: ERENUMAB-AOOE
     Indication: MIGRAINE WITHOUT AURA
     Dosage: UNK UNK, QMO
     Route: 065
     Dates: start: 20180816, end: 20180816
  5. ZOFRAN [Concomitant]
     Active Substance: ONDANSETRON HYDROCHLORIDE
     Dosage: UNK
     Route: 042
     Dates: start: 20180816
  6. BENADRYL [Concomitant]
     Active Substance: DIPHENHYDRAMINE HYDROCHLORIDE
     Dosage: UNK
     Route: 042
     Dates: start: 20180816
  7. IMITREX [Concomitant]
     Active Substance: SUMATRIPTAN SUCCINATE
     Dosage: UNK
  8. ATIVAN [Concomitant]
     Active Substance: LORAZEPAM
     Dosage: UNK
     Route: 042
     Dates: start: 20180816

REACTIONS (14)
  - Pain [Unknown]
  - Dysphagia [Unknown]
  - Speech disorder [Unknown]
  - Paraesthesia [Unknown]
  - Trismus [Unknown]
  - Gait disturbance [Unknown]
  - Gingival disorder [Unknown]
  - Hypoaesthesia [Unknown]
  - Chest pain [Unknown]
  - Facial nerve disorder [Unknown]
  - Saccadic eye movement [Unknown]
  - Throat tightness [Unknown]
  - Dyspnoea [Unknown]
  - Dyskinesia [Unknown]

NARRATIVE: CASE EVENT DATE: 20180816
